FAERS Safety Report 8904715 (Version 1)
Quarter: 2012Q4

REPORT INFORMATION
  Report Type: 
  Country: US (occurrence: US)
  Receive Date: 20121113
  Receipt Date: 20121113
  Transmission Date: 20130627
  Serious: No
  Sender: FDA-Public Use
  Company Number: US-GLAXOSMITHKLINE-A0976976A

PATIENT
  Sex: Male

DRUGS (2)
  1. CARVEDILOL [Suspect]
     Indication: BLOOD PRESSURE
     Dosage: 25MG Twice per day
     Route: 048
     Dates: start: 2008
  2. NO CONCURRENT MEDICATION [Concomitant]

REACTIONS (1)
  - Drug ineffective [Unknown]
